FAERS Safety Report 5409098-5 (Version None)
Quarter: 2007Q3

REPORT INFORMATION
  Report Type: 
  Country: None (occurrence: None)
  Receive Date: 20070806
  Receipt Date: 20070726
  Transmission Date: 20080115
  Serious: Yes (Life-Threatening)
  Sender: FDA-Public Use
  Company Number: 2007AL003016

PATIENT
  Age: 78 Year
  Sex: Female

DRUGS (5)
  1. DICLOFENAC SODIUM [Suspect]
     Indication: PAIN
     Dosage: 50 MG;TID;PO
     Route: 048
  2. ACETYLSALICYLIC ACID SRT [Concomitant]
  3. EZETIMIBE [Concomitant]
  4. CANDESARTAN CILEXETIL [Concomitant]
  5. DICLOFENAC [Concomitant]

REACTIONS (3)
  - GASTRITIS EROSIVE [None]
  - GASTROINTESTINAL HAEMORRHAGE [None]
  - SMALL INTESTINE CARCINOMA [None]
